FAERS Safety Report 6159296-0 (Version None)
Quarter: 2009Q2

REPORT INFORMATION
  Report Type: 
  Country: None (occurrence: None)
  Receive Date: 20090417
  Receipt Date: 20090414
  Transmission Date: 20091009
  Serious: Yes (Life-Threatening, Hospitalization)
  Sender: FDA-Public Use
  Company Number: RU-SANOFI-SYNTHELABO-A01200904021

PATIENT
  Sex: Female
  Weight: 65 kg

DRUGS (10)
  1. MICARDIS [Concomitant]
     Indication: CORONARY ARTERY DISEASE
     Route: 048
     Dates: start: 20090317, end: 20090326
  2. LASIX [Concomitant]
     Indication: CORONARY ARTERY DISEASE
     Route: 042
     Dates: start: 20090401, end: 20090410
  3. CORDARONE [Concomitant]
     Indication: VENTRICULAR EXTRASYSTOLES
     Route: 048
     Dates: start: 20090115
  4. CLEXANE [Concomitant]
     Indication: DRUG USE FOR UNKNOWN INDICATION
     Route: 065
     Dates: start: 20090317, end: 20090324
  5. PLAVIX [Suspect]
     Indication: CORONARY ARTERY DISEASE
     Route: 048
     Dates: start: 20090324, end: 20090329
  6. PLAVIX [Suspect]
     Route: 048
     Dates: start: 20090324, end: 20090329
  7. PLAVIX [Suspect]
     Indication: ANGINA UNSTABLE
     Route: 048
     Dates: start: 20090324, end: 20090329
  8. ASPIRIN [Suspect]
     Indication: CORONARY ARTERY DISEASE
     Route: 048
     Dates: start: 20090324, end: 20090329
  9. MONOCHINKVE [Concomitant]
     Indication: CORONARY ARTERY DISEASE
     Route: 048
     Dates: start: 20090115
  10. MONOCHINKVE [Concomitant]
     Route: 048
     Dates: start: 20090115

REACTIONS (6)
  - ABDOMINAL PAIN UPPER [None]
  - ANAEMIA [None]
  - DIARRHOEA [None]
  - DYSPEPSIA [None]
  - OESOPHAGEAL ULCER [None]
  - VOMITING [None]
